FAERS Safety Report 11362078 (Version 1)
Quarter: 2015Q3

REPORT INFORMATION
  Report Type: Other
  Country: GB (occurrence: GB)
  Receive Date: 20150810
  Receipt Date: 20150810
  Transmission Date: 20151125
  Serious: Yes (Hospitalization)
  Sender: FDA-Public Use
  Company Number: GB-TARO PHARMACEUTICALS USA.,INC-2015SUN01797

PATIENT
  Age: 55 Year
  Sex: Female
  Weight: 166.49 kg

DRUGS (6)
  1. CITALOPRAM [Concomitant]
     Active Substance: CITALOPRAM HYDROBROMIDE
  2. GABAPENTIN. [Concomitant]
     Active Substance: GABAPENTIN
     Dosage: 900 MG, TID
  3. WARFARIN [Suspect]
     Active Substance: WARFARIN
     Dosage: 4MG DAILY EXCEPT 5MG ON TUESDAYS AND SATURDAYS.
     Route: 048
     Dates: start: 201504
  4. COCODAMOL [Concomitant]
     Active Substance: ACETAMINOPHEN\CODEINE PHOSPHATE
  5. WARFARIN [Suspect]
     Active Substance: WARFARIN
     Indication: THROMBOSIS PROPHYLAXIS
     Dosage: 4MG DAILY EXCEPT 5MG ON TUESDAYS AND SATURDAYS.
     Route: 048
     Dates: start: 20141014, end: 201504
  6. GABAPENTIN. [Concomitant]
     Active Substance: GABAPENTIN
     Dosage: 600 MG, TID

REACTIONS (3)
  - Chest pain [Unknown]
  - Drug ineffective [Unknown]
  - Pulmonary embolism [Not Recovered/Not Resolved]

NARRATIVE: CASE EVENT DATE: 20150721
